FAERS Safety Report 11635989 (Version 1)
Quarter: 2015Q4

REPORT INFORMATION
  Report Type: Spontaneous
  Country: US (occurrence: US)
  Receive Date: 20151016
  Receipt Date: 20151016
  Transmission Date: 20160304
  Serious: No
  Sender: FDA-Public Use
  Company Number: US-AMGEN-USASP2015107707

PATIENT
  Sex: Male

DRUGS (1)
  1. ENBREL [Suspect]
     Active Substance: ETANERCEPT
     Indication: PSORIASIS
     Dosage: 50 MG, 2 TIMES/WK
     Route: 065
     Dates: start: 201504

REACTIONS (6)
  - Sinus headache [Unknown]
  - Fatigue [Unknown]
  - Stress [Unknown]
  - Headache [Unknown]
  - Drug effect incomplete [Unknown]
  - Condition aggravated [Unknown]

NARRATIVE: CASE EVENT DATE: 2015
